FAERS Safety Report 9863326 (Version 1)
Quarter: 2014Q1

REPORT INFORMATION
  Report Type: Spontaneous
  Country: US (occurrence: US)
  Receive Date: 20140203
  Receipt Date: 20140203
  Transmission Date: 20141002
  Serious: No
  Sender: FDA-Public Use
  Company Number: US-PFIZER INC-2014028995

PATIENT
  Age: 29 Year
  Sex: Female
  Weight: 111 kg

DRUGS (3)
  1. NORVASC [Suspect]
     Indication: HYPERTENSION
     Dosage: 10 MG, 1X/DAY
     Dates: start: 2012
  2. RANITIDINE [Concomitant]
     Dosage: 150 MG, 2X/DAY
  3. TRAMADOL [Concomitant]
     Indication: PAIN
     Dosage: UNK

REACTIONS (4)
  - Ear pain [Not Recovered/Not Resolved]
  - Headache [Not Recovered/Not Resolved]
  - Pain [Not Recovered/Not Resolved]
  - Feeling abnormal [Not Recovered/Not Resolved]
